FAERS Safety Report 9525656 (Version 1)
Quarter: 2013Q3

REPORT INFORMATION
  Report Type: Report from Study
  Country: IT (occurrence: IT)
  Receive Date: 20130916
  Receipt Date: 20130916
  Transmission Date: 20140515
  Serious: Yes (Death, Hospitalization)
  Sender: FDA-Public Use
  Company Number: IT-SANOFI-AVENTIS-2013SA090726

PATIENT
  Sex: Female

DRUGS (13)
  1. CAPECITABINE [Suspect]
     Indication: GASTRIC CANCER
     Dosage: TWO HALF-DOSES AT 12-H INTERVAL FOR 14 DAYS, GIVEN ON DAYS 2-15, CYCLE 1 OF LEVEL III
     Route: 048
  2. CAPECITABINE [Suspect]
     Indication: GASTRIC CANCER
     Dosage: DIVIDED INTO TWO HALF-DOSES AT 12-H INTERVAL FOR 14 DAYS, GIVEN ON DAYS 2-15, CYCLE 2 OF LEVEL III
     Route: 048
  3. DOCETAXEL [Suspect]
     Indication: GASTRIC CANCER
     Dosage: 60-MIN IV INFUSION, GIVEN ON DAYS 1 AND 8, FIRST CYCLE OF LEVEL III
     Route: 042
  4. DOCETAXEL [Suspect]
     Indication: GASTRIC CANCER
     Dosage: 60-MIN IV INFUSION, GIVEN ON DAYS 1 AND 8, SECOND CYCLE OF LEVEL III
     Route: 042
  5. OXALIPLATIN [Suspect]
     Indication: GASTRIC CANCER
     Dosage: 60-MIN IV INFUSION, GIVEN ON DAYS 1 AND 8, FIRST CYCLE OF LEVEL III
     Route: 042
  6. OXALIPLATIN [Suspect]
     Indication: GASTRIC CANCER
     Dosage: 60-MIN IV INFUSION, GIVEN ON DAYS 1 AND 8, SECOND CYCLE OF LEVEL III
     Route: 042
  7. PREDNISONE [Concomitant]
     Indication: PREMEDICATION
     Dosage: GIVEN ON THE DAY BEFORE THE CHEMOTHERAPY
     Route: 048
  8. PREDNISONE [Concomitant]
     Indication: PREMEDICATION
     Dosage: GIVEN ON THE DAY OF CHEMOTHERAPY
     Route: 048
  9. PREDNISONE [Concomitant]
     Indication: PREMEDICATION
     Dosage: GIVEN ON THE DAY AFTER THE CHEMOTHERAPY
     Route: 048
  10. DEXAMETHASONE [Concomitant]
     Indication: PREMEDICATION
     Dosage: GIVEN JUST BEFORE CHEMOTHERAPY ON DAYS 1 AND 8
     Route: 042
  11. RANITIDINE [Concomitant]
     Indication: PREMEDICATION
     Dosage: GIVEN JUST BEFORE CHEMOTHERAPY ON DAYS 1 AND 8
     Route: 042
  12. CHLORPHENAMINE MALEATE [Concomitant]
     Indication: PREMEDICATION
     Dosage: GIVEN JUST BEFORE CHEMOTHERAPY ON DAYS 1 AND 8
     Route: 042
  13. SEROTONIN ANTAGONISTS [Concomitant]
     Indication: PREMEDICATION
     Route: 042

REACTIONS (1)
  - Gastrointestinal haemorrhage [Fatal]
